FAERS Safety Report 5893486-7 (Version None)
Quarter: 2008Q3

REPORT INFORMATION
  Report Type: 
  Country: None (occurrence: None)
  Receive Date: 20080923
  Receipt Date: 20080922
  Transmission Date: 20090109
  Serious: Yes (Hospitalization)
  Sender: FDA-Public Use
  Company Number: NL-BRISTOL-MYERS SQUIBB COMPANY-14323174

PATIENT
  Age: 47 Year
  Sex: Female
  Weight: 45 kg

DRUGS (8)
  1. PACLITAXEL [Suspect]
     Indication: NON-SMALL CELL LUNG CANCER
     Dosage: INITIATED ON 15JAN07 ,290MG ON DAY1 OF 21 DAY CYCLE. STOPPED ON 19-FEB-2007
     Route: 042
     Dates: start: 20070115, end: 20070115
  2. CARBOPLATIN [Suspect]
     Indication: NON-SMALL CELL LUNG CANCER
     Dosage: 600 MG GIVEN ON DAY 1 OF THE 21 DAY CYCLE INITIATED ON 15JAN07, STOP DT 19-FEB-2007.
     Route: 042
     Dates: start: 20070115, end: 20070115
  3. PF-3512676 [Suspect]
     Indication: NON-SMALL CELL LUNG CANCER
     Dosage: 9 MG ON DAY 8 AND 15 OF 21 DAY, WITHDRAWN ON 29JAN07
     Route: 058
     Dates: start: 20070122, end: 20070122
  4. CODEINE SUL TAB [Suspect]
     Route: 048
     Dates: start: 20060101
  5. ACETAMINOPHEN [Concomitant]
     Route: 048
     Dates: start: 20060101
  6. DICLOFENAC [Concomitant]
     Route: 048
     Dates: start: 20060101
  7. PRIMPERAN TAB [Concomitant]
     Route: 048
     Dates: start: 20070115
  8. ONDANSETRON [Concomitant]
     Route: 048
     Dates: start: 20070115

REACTIONS (1)
  - INTESTINAL OBSTRUCTION [None]
